FAERS Safety Report 9275834 (Version 1)
Quarter: 2013Q2

REPORT INFORMATION
  Report Type: Report from Study
  Country: US (occurrence: US)
  Receive Date: 20130507
  Receipt Date: 20130507
  Transmission Date: 20140414
  Serious: Yes (Hospitalization)
  Sender: FDA-Public Use
  Company Number: US-ABBOTT-13P-163-1083744-00

PATIENT
  Sex: Male
  Weight: 72.64 kg

DRUGS (1)
  1. HUMIRA [Suspect]
     Indication: CROHN^S DISEASE
     Route: 058
     Dates: start: 2008

REACTIONS (4)
  - Gastrointestinal disorder [Recovered/Resolved with Sequelae]
  - Gastrointestinal anastomotic leak [Recovered/Resolved]
  - Crohn^s disease [Recovered/Resolved with Sequelae]
  - Pain [Not Recovered/Not Resolved]
